FAERS Safety Report 7425281-1 (Version None)
Quarter: 2011Q2

REPORT INFORMATION
  Report Type: 
  Country: None (occurrence: None)
  Receive Date: 20110420
  Receipt Date: 20110414
  Transmission Date: 20111010
  Serious: Yes (Life-Threatening, Hospitalization)
  Sender: FDA-Public Use
  Company Number: IT-AMGEN-ITACT2011010556

PATIENT
  Age: 59 Year
  Sex: Female

DRUGS (7)
  1. ARAVA [Suspect]
     Indication: RHEUMATOID ARTHRITIS
     Dosage: 20 MG, 1X/DAY
     Route: 048
     Dates: start: 20100601, end: 20110206
  2. BRUFEN                             /00109201/ [Concomitant]
     Dosage: 600 MG, UNK
     Route: 048
     Dates: start: 20100601, end: 20110206
  3. MEDROL [Suspect]
     Indication: RHEUMATOID ARTHRITIS
     Dosage: 2 MG, 1X/DAY
     Route: 048
     Dates: start: 20001008
  4. CONGESCOR [Concomitant]
     Indication: SUPRAVENTRICULAR EXTRASYSTOLES
     Dosage: 5 MG, UNK
     Route: 048
     Dates: start: 20060101, end: 20110214
  5. ETANERCEPT [Suspect]
     Indication: RHEUMATOID ARTHRITIS
     Dosage: 50 MG, QWK
     Route: 058
     Dates: start: 20070701, end: 20110206
  6. ACTONEL [Concomitant]
     Indication: OSTEOPOROSIS
     Dosage: 75 MG, UNK
     Route: 048
     Dates: start: 20100301, end: 20110206
  7. DIBASE [Concomitant]
     Indication: OSTEOPOROSIS
     Dosage: 5000 DOSAGE UNIT
     Dates: start: 20100301, end: 20110206

REACTIONS (2)
  - MYOCARDIAL INFARCTION [None]
  - PERICARDIAL EFFUSION [None]
